FAERS Safety Report 5152863-2 (Version None)
Quarter: 2006Q4

REPORT INFORMATION
  Report Type: 
  Country: None (occurrence: None)
  Receive Date: 20061117
  Receipt Date: 20061110
  Transmission Date: 20070319
  Serious: Yes (Death, Life-Threatening)
  Sender: FDA-Public Use
  Company Number: US-RB-004329-06

PATIENT
  Sex: Female

DRUGS (6)
  1. SUBOXONE [Suspect]
     Dosage: 4 MG DOSE AND 2 MG DOSE WERE TAKEN ON THE SAME DAY TO EQUAL A 6 MG/DAY
     Route: 060
  2. BUPRENEX [Suspect]
     Route: 042
  3. DURAGESIC-100 [Concomitant]
  4. HYDROCODONE [Concomitant]
  5. PHENERGAN [Concomitant]
  6. BENADRYL [Concomitant]

REACTIONS (5)
  - CONVULSION [None]
  - DEATH [None]
  - HEPATOCELLULAR DAMAGE [None]
  - NAUSEA [None]
  - PANCREATIC CARCINOMA [None]
